FAERS Safety Report 6064388-0 (Version None)
Quarter: 2009Q1

REPORT INFORMATION
  Report Type: 
  Country: None (occurrence: None)
  Receive Date: 20090203
  Receipt Date: 20090203
  Transmission Date: 20090719
  Serious: Yes (Death, Hospitalization)
  Sender: FDA-Public Use
  Company Number: None

PATIENT
  Age: 61 Year
  Sex: Female
  Weight: 62.5964 kg

DRUGS (3)
  1. AVASTIN [Suspect]
     Indication: TRANSITIONAL CELL CARCINOMA
     Dosage: 904MG Q3WKS :INTRAVENOUS (NOT OTHERWISE SPECIFIED)
     Route: 042
     Dates: start: 20080807, end: 20081124
  2. GEMZAR [Suspect]
     Indication: TRANSITIONAL CELL CARCINOMA
     Dosage: 1660 MG D1,D8 OF 21-DAY CYCLE: INTRAVENOUS (NOT OTHERWISE SPECIFIED)
     Route: 042
     Dates: start: 20080807, end: 20081124
  3. CISPLATIN [Suspect]
     Indication: TRANSITIONAL CELL CARCINOMA
     Dosage: 116MG Q3WKS : INTRAVENOUS (NOT OTHERWISE SPECIFIED
     Route: 042
     Dates: start: 20080807, end: 20081124

REACTIONS (11)
  - BRAIN CONTUSION [None]
  - BRAIN HERNIATION [None]
  - CEREBRAL HAEMORRHAGE [None]
  - CONVULSION [None]
  - INTRACRANIAL ANEURYSM [None]
  - PAIN [None]
  - POSTURING [None]
  - SNORING [None]
  - SUBARACHNOID HAEMORRHAGE [None]
  - SUBDURAL HAEMATOMA [None]
  - VASOGENIC CEREBRAL OEDEMA [None]
